FAERS Safety Report 23509749 (Version 1)
Quarter: 2024Q1

REPORT INFORMATION
  Report Type: Spontaneous
  Country: US (occurrence: US)
  Receive Date: 20240210
  Receipt Date: 20240210
  Transmission Date: 20240410
  Serious: No
  Sender: FDA-Public Use
  Company Number: US-JNJFOC-20240187528

PATIENT
  Age: 14 Year
  Sex: Female
  Weight: 76.6 kg

DRUGS (1)
  1. DARZALEX [Suspect]
     Active Substance: DARATUMUMAB
     Indication: Plasma cell myeloma
     Dosage: 400MG* 3 VIALS
     Route: 042

REACTIONS (2)
  - Infusion related reaction [Unknown]
  - Off label use [Unknown]
